FAERS Safety Report 19788591 (Version 1)
Quarter: 2021Q3

REPORT INFORMATION
  Report Type: Other
  Country: CZ (occurrence: CZ)
  Receive Date: 20210904
  Receipt Date: 20210904
  Transmission Date: 20211014
  Serious: Yes (Hospitalization)
  Sender: FDA-Public Use
  Company Number: CZ-CELLTRION INC.-2021CZ011777

PATIENT

DRUGS (1)
  1. REMSIMA [Suspect]
     Active Substance: INFLIXIMAB
     Indication: ANKYLOSING SPONDYLITIS
     Dosage: 400 MG EVERY 2 MONTHS
     Route: 042
     Dates: start: 20180523, end: 20210414

REACTIONS (1)
  - Epididymitis [Not Recovered/Not Resolved]
